FAERS Safety Report 5732938-7 (Version None)
Quarter: 2008Q2

REPORT INFORMATION
  Report Type: 
  Country: None (occurrence: None)
  Receive Date: 20080509
  Receipt Date: 20080417
  Transmission Date: 20081010
  Serious: No
  Sender: FDA-Public Use
  Company Number: A0723438A

PATIENT
  Age: 75 Year
  Sex: Male

DRUGS (6)
  1. COREG CR [Suspect]
     Indication: HYPERTENSION
     Dosage: 40MG PER DAY
     Route: 048
     Dates: start: 20071002
  2. NEXIUM [Concomitant]
  3. FIBERCON [Concomitant]
  4. VALIUM [Concomitant]
  5. MUCINEX [Concomitant]
  6. VITAMIN B-12 [Concomitant]

REACTIONS (7)
  - CRYSTAL URINE [None]
  - DRUG INEFFECTIVE [None]
  - ERECTILE DYSFUNCTION [None]
  - GENITAL DISCOMFORT [None]
  - SCROTAL DISORDER [None]
  - URINARY RETENTION [None]
  - URINARY TRACT INFECTION [None]
